FAERS Safety Report 7042369-8 (Version None)
Quarter: 2010Q4

REPORT INFORMATION
  Report Type: 
  Country: None (occurrence: None)
  Receive Date: 20101013
  Receipt Date: 20100625
  Transmission Date: 20110411
  Serious: No
  Sender: FDA-Public Use
  Company Number: US-ASTRAZENECA-2010SE29866

PATIENT
  Age: 50 Year
  Sex: Female

DRUGS (6)
  1. SYMBICORT [Suspect]
     Indication: ASTHMA
     Dosage: 320 MCGS TWO PUFFS
     Route: 055
     Dates: start: 20081101
  2. SYMBICORT [Suspect]
     Dosage: 320 MCGS TWO PUFFS
     Route: 055
     Dates: start: 20081101
  3. PROAIR HFA [Concomitant]
     Indication: ASTHMA
     Dosage: PRN
  4. HYDROCODEINE [Concomitant]
     Indication: COUGH
     Dosage: PRN
  5. METHOTREXATE [Concomitant]
  6. PREDNISONE [Concomitant]

REACTIONS (3)
  - ASTHMA [None]
  - COUGH [None]
  - INCORRECT DOSE ADMINISTERED [None]
